FAERS Safety Report 15293237 (Version 1)
Quarter: 2018Q3

REPORT INFORMATION
  Report Type: Spontaneous
  Country: US (occurrence: US)
  Receive Date: 20180820
  Receipt Date: 20180820
  Transmission Date: 20181010
  Serious: No
  Sender: FDA-Public Use
  Company Number: US-009507513-1808USA001279

PATIENT
  Age: 3 Year
  Sex: Male

DRUGS (1)
  1. DIPROLENE [Suspect]
     Active Substance: BETAMETHASONE DIPROPIONATE
     Indication: DERMATITIS CONTACT
     Dosage: UNK, BID

REACTIONS (1)
  - Drug administered to patient of inappropriate age [Unknown]
